FAERS Safety Report 7910458-9 (Version None)
Quarter: 2011Q4

REPORT INFORMATION
  Report Type: 
  Country: None (occurrence: None)
  Receive Date: 20111111
  Receipt Date: 20110427
  Transmission Date: 20120403
  Serious: No
  Sender: FDA-Public Use
  Company Number: US-BAYER-2011-073258

PATIENT
  Sex: Male
  Weight: 78 kg

DRUGS (8)
  1. ASCORBIC ACID [Concomitant]
  2. ACETYLSALICYLIC ACID SRT [Concomitant]
  3. NADOLOL [Concomitant]
     Indication: HEART RATE IRREGULAR
  4. LOVASTATIN [Concomitant]
  5. VITAMIN D [Concomitant]
  6. MULTI-VITAMIN [Concomitant]
  7. SODIUM BICARBONATE [Suspect]
     Indication: DYSPEPSIA
     Dosage: 1OR 2  TABLETS, QD
     Route: 048
  8. PROSCAR [Concomitant]
     Dosage: UNK

REACTIONS (1)
  - NO ADVERSE EVENT [None]
